FAERS Safety Report 5692884-4 (Version None)
Quarter: 2008Q2

REPORT INFORMATION
  Report Type: 
  Country: None (occurrence: None)
  Receive Date: 20080326
  Receipt Date: 20080107
  Transmission Date: 20081010
  Serious: No
  Sender: FDA-Public Use
  Company Number: US-CVT-080002

PATIENT
  Age: 64 Year
  Sex: Female

DRUGS (12)
  1. RANEXA [Suspect]
     Indication: ANGINA PECTORIS
     Dosage: 500 MG, BID, ORAL ; 1000 MG, BID, ORAL
     Route: 048
     Dates: start: 20071026, end: 20071220
  2. RANEXA [Suspect]
     Indication: ANGINA PECTORIS
     Dosage: 500 MG, BID, ORAL ; 1000 MG, BID, ORAL
     Route: 048
     Dates: start: 20071221, end: 20080105
  3. TOPROL-XL [Concomitant]
  4. INSULIN, REGULAR (INSULIN) [Concomitant]
  5. NPH INSULIN (INSULIN INJECTION, ISOPHANE) [Concomitant]
  6. HYZAAR [Concomitant]
  7. ALLOPURINOL [Concomitant]
  8. NEXIUM [Concomitant]
  9. LEVOTHYROXIN/00068001/ (LEVOTHYROXINE) [Concomitant]
  10. PRAVACHOL [Concomitant]
  11. ALTACE [Concomitant]
  12. ALBUTEROL/00139501/ (SALBUTAMOL) [Concomitant]

REACTIONS (5)
  - HYPOAESTHESIA [None]
  - HYPOAESTHESIA ORAL [None]
  - NASAL CONGESTION [None]
  - PALPITATIONS [None]
  - TINNITUS [None]
